FAERS Safety Report 5033584-3 (Version None)
Quarter: 2006Q2

REPORT INFORMATION
  Report Type: 
  Country: None (occurrence: None)
  Receive Date: 20060623
  Receipt Date: 20060615
  Transmission Date: 20061013
  Serious: Yes (Other)
  Sender: FDA-Public Use
  Company Number: JP-ROCHE-451977

PATIENT
  Age: 51 Year
  Sex: Male

DRUGS (1)
  1. PANALDINE [Suspect]
     Indication: DRUG USE FOR UNKNOWN INDICATION
     Route: 048
     Dates: start: 20050515, end: 20050615

REACTIONS (1)
  - DRUG ERUPTION [None]
